FAERS Safety Report 8155448-9 (Version None)
Quarter: 2012Q1

REPORT INFORMATION
  Report Type: 
  Country: None (occurrence: None)
  Receive Date: 20120206
  Receipt Date: 20120125
  Transmission Date: 20120608
  Serious: Yes (Other)
  Sender: FDA-Public Use
  Company Number: AECAN201200034

PATIENT
  Age: 52 Year
  Sex: Female
  Weight: 97.1 kg

DRUGS (8)
  1. GLYBURIDE [Concomitant]
  2. IGIVNEX [Suspect]
     Indication: IDIOPATHIC THROMBOCYTOPENIC PURPURA
     Dosage: 100 GM;1X;IV
     Route: 042
     Dates: start: 20120123, end: 20120123
  3. METFORMIN HCL [Concomitant]
  4. GAMUNEX [Suspect]
     Indication: IDIOPATHIC THROMBOCYTOPENIC PURPURA
     Dosage: 100 GM;1X;IV
     Route: 042
     Dates: start: 20120124, end: 20120124
  5. ATENOLOL [Concomitant]
  6. FLOVENT [Concomitant]
  7. CRESTOR [Concomitant]
  8. MELOXICAM [Concomitant]

REACTIONS (2)
  - HAEMATURIA [None]
  - HAEMOLYSIS [None]
